FAERS Safety Report 7946987-1 (Version None)
Quarter: 2011Q4

REPORT INFORMATION
  Report Type: 
  Country: None (occurrence: None)
  Receive Date: 20111129
  Receipt Date: 20110819
  Transmission Date: 20120403
  Serious: No
  Sender: FDA-Public Use
  Company Number: US-ASTRAZENECA-2011SE49942

PATIENT
  Age: 70 Year
  Sex: Female
  Weight: 90.7 kg

DRUGS (1)
  1. VIMOVO [Suspect]
     Indication: OSTEOARTHRITIS
     Dosage: 375 MG/20 MG, FREQUENCY TWO TIMES A DAY
     Route: 048

REACTIONS (3)
  - PAIN IN EXTREMITY [None]
  - NECK PAIN [None]
  - DRUG INEFFECTIVE [None]
